FAERS Safety Report 19055321 (Version 1)
Quarter: 2021Q1

REPORT INFORMATION
  Report Type: Spontaneous
  Country: US (occurrence: US)
  Receive Date: 20210325
  Receipt Date: 20210325
  Transmission Date: 20210420
  Serious: Yes (Hospitalization, Other)
  Sender: FDA-Public Use
  Company Number: US-MICRO LABS LIMITED-ML2021-00888

PATIENT
  Age: 48 Year
  Sex: Male

DRUGS (1)
  1. BUPROPION. [Suspect]
     Active Substance: BUPROPION
     Dosage: 90 TABLETS OF 300 MG EXTENDED?RELEASE

REACTIONS (7)
  - Electrocardiogram QT prolonged [Recovering/Resolving]
  - Nervous system disorder [Recovering/Resolving]
  - Status epilepticus [Recovering/Resolving]
  - Suicide attempt [Unknown]
  - Chest discomfort [Recovering/Resolving]
  - Hypotension [Recovering/Resolving]
  - Overdose [Unknown]
